FAERS Safety Report 17259744 (Version 3)
Quarter: 2020Q1

REPORT INFORMATION
  Report Type: Spontaneous
  Country: IE (occurrence: IE)
  Receive Date: 20200110
  Receipt Date: 20200217
  Transmission Date: 20200409
  Serious: Yes (Hospitalization)
  Sender: FDA-Public Use
  Company Number: IE-AUROBINDO-AUR-APL-2020-001761

PATIENT
  Age: 52 Year
  Sex: Female

DRUGS (4)
  1. SODIUM CHLORIDE. [Suspect]
     Active Substance: SODIUM CHLORIDE
     Indication: MEDICATION DILUTION
     Dosage: 300 MILLILITER, ONCE A DAY, (SOLUTION FOR INFUSION) (DILUENT FOR PIPERACILLIN-TAZOBACTAM 4500MG)
     Route: 042
     Dates: start: 20191221
  2. DAPTOMYCIN. [Suspect]
     Active Substance: DAPTOMYCIN
     Indication: PRODUCT USED FOR UNKNOWN INDICATION
     Dosage: 850 MILLIGRAM, ONCE A DAY
     Route: 042
     Dates: start: 20191221
  3. PIPERACILLIN AND TAZOBACTAM [Suspect]
     Active Substance: PIPERACILLIN SODIUM\TAZOBACTAM SODIUM
     Indication: PRODUCT USED FOR UNKNOWN INDICATION
     Dosage: 13500 MILLIGRAM, ONCE A DAY
     Route: 042
     Dates: start: 20191221
  4. SODIUM CHLORIDE. [Suspect]
     Active Substance: SODIUM CHLORIDE
     Dosage: 100 MILLILITER, ONCE A DAY, (SOLUTION FOR INFUSION) (DILUENT FOR DAPTOMYCIN 850MG)
     Route: 042
     Dates: start: 20191221

REACTIONS (1)
  - Chest pain [Unknown]

NARRATIVE: CASE EVENT DATE: 20191230
